FAERS Safety Report 19978354 (Version 1)
Quarter: 2021Q4

REPORT INFORMATION
  Report Type: Spontaneous
  Country: US (occurrence: US)
  Receive Date: 20211021
  Receipt Date: 20211021
  Transmission Date: 20220303
  Serious: Yes (Hospitalization)
  Sender: FDA-Public Use
  Company Number: None

PATIENT
  Age: 64 Year
  Sex: Female

DRUGS (1)
  1. REMICADE [Suspect]
     Active Substance: INFLIXIMAB
     Indication: Crohn^s disease
     Dosage: ?          OTHER FREQUENCY:ON WEEK 0, 2 AND 6;
     Route: 042
     Dates: start: 20211007, end: 20211007

REACTIONS (7)
  - Myalgia [None]
  - Lip swelling [None]
  - Eye swelling [None]
  - Flushing [None]
  - Paraesthesia [None]
  - Urticaria [None]
  - Erythema [None]

NARRATIVE: CASE EVENT DATE: 20211018
